FAERS Safety Report 15728789 (Version 1)
Quarter: 2018Q4

REPORT INFORMATION
  Report Type: Spontaneous
  Country: US (occurrence: US)
  Receive Date: 20181214
  Receipt Date: 20181214
  Transmission Date: 20190205
  Serious: Yes (Other)
  Sender: FDA-Public Use
  Company Number: None

PATIENT
  Age: 36 Year
  Sex: Male
  Weight: 83.25 kg

DRUGS (1)
  1. PAIN RELIEF PATCH [Suspect]
     Active Substance: CAMPHOR (SYNTHETIC)\LEVOMENTHOL\METHYL SALICYLATE
     Indication: MUSCLE STRAIN
     Dosage: ?          QUANTITY:20 PATCH(ES);?
     Route: 062
     Dates: start: 20181211, end: 20181211

REACTIONS (8)
  - Application site pruritus [None]
  - Skin burning sensation [None]
  - Application site erythema [None]
  - Application site swelling [None]
  - Scar [None]
  - Application site warmth [None]
  - Medical device site reaction [None]
  - Rash papular [None]

NARRATIVE: CASE EVENT DATE: 20181211
